FAERS Safety Report 5321031-3 (Version None)
Quarter: 2007Q3

REPORT INFORMATION
  Report Type: 
  Country: None (occurrence: None)
  Receive Date: 20070504
  Receipt Date: 20070502
  Transmission Date: 20080115
  Serious: Yes (Other)
  Sender: FDA-Public Use
  Company Number: TPA2006A00788

PATIENT
  Age: 84 Year
  Sex: Female
  Weight: 60.782 kg

DRUGS (16)
  1. ACTOS [Suspect]
     Indication: DIABETES MELLITUS
     Dosage: 15 MG, 1 IN 1 D, PER ORAL
     Route: 048
     Dates: end: 20060315
  2. BETACAROTENE (BETACAROTENE) [Concomitant]
  3. LASIX [Concomitant]
  4. VITAMIN E (TOCOPHEROL) (400 IU (INTERNATIONAL UNIT)) [Concomitant]
  5. SERAX [Concomitant]
  6. LOPID [Concomitant]
  7. ASPIRIN [Concomitant]
  8. K-DUR 10 [Concomitant]
  9. COREG [Concomitant]
  10. LANOXIN [Concomitant]
  11. HALCION [Concomitant]
  12. STARLIX [Concomitant]
  13. LIPITOR [Concomitant]
  14. RANITIDINE [Concomitant]
  15. GLUCOTROL [Concomitant]
  16. PROTONIX [Concomitant]

REACTIONS (8)
  - ANTINUCLEAR ANTIBODY POSITIVE [None]
  - DUODENITIS [None]
  - FOLATE DEFICIENCY [None]
  - GASTRITIS [None]
  - LIPOMA [None]
  - THROMBOCYTOPENIA [None]
  - VITAMIN B12 DEFICIENCY [None]
  - WEIGHT DECREASED [None]
